FAERS Safety Report 5001372-X (Version None)
Quarter: 2006Q2

REPORT INFORMATION
  Report Type: 
  Country: None (occurrence: None)
  Receive Date: 20060512
  Receipt Date: 20050324
  Transmission Date: 20061013
  Serious: Yes (Hospitalization, Disabling)
  Sender: FDA-Public Use
  Company Number: US-MERCK-0503USA04555

PATIENT
  Age: 44 Year
  Sex: Male
  Weight: 82 kg

DRUGS (15)
  1. VIOXX [Suspect]
     Indication: ARTHRITIS
     Route: 048
     Dates: start: 19990101, end: 20010101
  2. WELLBUTRIN [Concomitant]
     Route: 065
  3. ALTACE [Concomitant]
     Route: 065
  4. SONATA [Concomitant]
     Route: 065
  5. HYDRODIURIL [Concomitant]
     Route: 065
  6. TYLENOL (CAPLET) [Concomitant]
     Route: 065
     Dates: start: 20000301, end: 20000301
  7. TOPAMAX [Concomitant]
     Route: 065
  8. SEROQUEL [Concomitant]
     Route: 065
  9. DEPAKOTE [Concomitant]
     Route: 065
  10. TRAZODONE HYDROCHLORIDE [Concomitant]
     Route: 065
  11. BUPROPION HYDROCHLORIDE [Concomitant]
     Route: 065
  12. ATIVAN [Concomitant]
     Route: 065
  13. ACETAMINOPHEN AND PROPOXYPHENE NAPSYLATE [Concomitant]
     Route: 065
  14. ULTRAM [Concomitant]
     Route: 065
  15. DARVOCET-N 100 [Concomitant]
     Route: 065

REACTIONS (10)
  - ANGINA PECTORIS [None]
  - ANHEDONIA [None]
  - ANXIETY [None]
  - ARTERIOSCLEROSIS [None]
  - BLOOD TRIGLYCERIDES INCREASED [None]
  - CARDIOVASCULAR DISORDER [None]
  - CORONARY ARTERY DISEASE [None]
  - DEPRESSION [None]
  - DYSPEPSIA [None]
  - MYOCARDIAL INFARCTION [None]
